FAERS Safety Report 5807940-7 (Version None)
Quarter: 2008Q3

REPORT INFORMATION
  Report Type: 
  Country: None (occurrence: None)
  Receive Date: 20080711
  Receipt Date: 20080114
  Transmission Date: 20090109
  Serious: Yes (Hospitalization, Other)
  Sender: FDA-Public Use
  Company Number: US-ROCHE-541824

PATIENT
  Age: 10 Year
  Sex: Male

DRUGS (6)
  1. CEFTRIAXONE [Suspect]
     Indication: DRUG USE FOR UNKNOWN INDICATION
     Route: 042
  2. CEFTRIAXONE [Suspect]
     Route: 042
  3. CEFTRIAXONE [Suspect]
     Route: 042
  4. CLINDAMYCIN HCL [Concomitant]
  5. CLINDAMYCIN HCL [Concomitant]
     Dosage: ROUTE: INTRAVENOUS.
  6. CEPHALEXIN [Concomitant]
     Route: 048

REACTIONS (6)
  - HAEMOLYSIS [None]
  - MENTAL STATUS CHANGES [None]
  - RASH MACULO-PAPULAR [None]
  - RENAL FAILURE ACUTE [None]
  - SKIN INFECTION [None]
  - SWELLING FACE [None]
